FAERS Safety Report 11096066 (Version 1)
Quarter: 2015Q2

REPORT INFORMATION
  Report Type: Spontaneous
  Country: US (occurrence: None)
  Receive Date: 20150506
  Receipt Date: 20150506
  Transmission Date: 20150821
  Serious: No
  Sender: FDA-Public Use
  Company Number: None

PATIENT
  Age: 29 Year
  Sex: Female
  Weight: 74.84 kg

DRUGS (16)
  1. CALCIUM [Concomitant]
     Active Substance: CALCIUM
  2. CELEXA [Concomitant]
     Active Substance: CITALOPRAM HYDROBROMIDE
  3. HUMIRA [Concomitant]
     Active Substance: ADALIMUMAB
  4. XOPENEX [Concomitant]
     Active Substance: LEVALBUTEROL HYDROCHLORIDE
  5. LAMICTAL [Concomitant]
     Active Substance: LAMOTRIGINE
  6. TRAZODONE [Suspect]
     Active Substance: TRAZODONE HYDROCHLORIDE
     Indication: BIPOLAR DISORDER
     Dosage: 3 PILLS QHS, 1 PILL IN AM TAKEN BY MOUTH  SEE ABOVE
     Route: 048
     Dates: start: 20150430, end: 20150504
  7. VITAMIN D [Concomitant]
     Active Substance: CHOLECALCIFEROL
  8. BROVANA [Concomitant]
     Active Substance: ARFORMOTEROL TARTRATE
  9. QVAR [Concomitant]
     Active Substance: BECLOMETHASONE DIPROPIONATE
  10. LEVOTHYROXINE [Concomitant]
     Active Substance: LEVOTHYROXINE
  11. METHOTREXATE [Concomitant]
     Active Substance: METHOTREXATE
  12. MELOXICAM. [Concomitant]
     Active Substance: MELOXICAM
  13. SEROQUEL [Concomitant]
     Active Substance: QUETIAPINE FUMARATE
  14. FOLIC ACID. [Concomitant]
     Active Substance: FOLIC ACID
  15. MULTIVITAMIN [Concomitant]
     Active Substance: VITAMINS
  16. PROBIOTICS [Concomitant]
     Active Substance: PROBIOTICS NOS

REACTIONS (1)
  - Headache [None]

NARRATIVE: CASE EVENT DATE: 20150502
